FAERS Safety Report 13967505 (Version 1)
Quarter: 2017Q3

REPORT INFORMATION
  Report Type: Spontaneous
  Country: US (occurrence: US)
  Receive Date: 20170914
  Receipt Date: 20170914
  Transmission Date: 20171128
  Serious: Yes (Other)
  Sender: FDA-Public Use
  Company Number: US-ASTRAZENECA-2009UW18926

PATIENT
  Sex: Male

DRUGS (7)
  1. SEROQUEL [Suspect]
     Active Substance: QUETIAPINE FUMARATE
     Route: 048
  2. PAXIL CR [Concomitant]
     Active Substance: PAROXETINE HYDROCHLORIDE
     Dates: start: 20050808
  3. VITAMIN B-1 [Concomitant]
     Active Substance: THIAMINE
     Dates: start: 20050808
  4. MULTIVITAMIN [Concomitant]
     Active Substance: VITAMINS
     Dates: start: 20050808
  5. SEROQUEL [Suspect]
     Active Substance: QUETIAPINE FUMARATE
     Route: 048
     Dates: start: 20051012
  6. SEROQUEL [Suspect]
     Active Substance: QUETIAPINE FUMARATE
     Dosage: UNKNOWN
     Route: 048
  7. HYDROCHLOROTHIAZIDE. [Concomitant]
     Active Substance: HYDROCHLOROTHIAZIDE
     Dates: start: 20050808

REACTIONS (10)
  - Colon cancer [Unknown]
  - Insomnia [Unknown]
  - Hypertension [Unknown]
  - Constipation [Unknown]
  - Diabetes mellitus [Unknown]
  - Cerebrovascular accident [Unknown]
  - Headache [Unknown]
  - Mood swings [Unknown]
  - Withdrawal syndrome [Unknown]
  - Drug dose omission [Unknown]
